FAERS Safety Report 10648421 (Version 1)
Quarter: 2014Q4

REPORT INFORMATION
  Report Type: Spontaneous
  Country: US (occurrence: US)
  Receive Date: 20141212
  Receipt Date: 20141212
  Transmission Date: 20150529
  Serious: Yes (Other)
  Sender: FDA-Public Use
  Company Number: US-JNJFOC-20141205415

PATIENT
  Age: 45 Year
  Sex: Male

DRUGS (2)
  1. PENTASA [Suspect]
     Active Substance: MESALAMINE
     Indication: PRODUCT USED FOR UNKNOWN INDICATION
     Route: 065
  2. REMICADE [Suspect]
     Active Substance: INFLIXIMAB
     Indication: CROHN^S DISEASE
     Dosage: 5 MG/KG STRENGTH
     Route: 042
     Dates: start: 2007

REACTIONS (6)
  - Aspartate aminotransferase abnormal [Unknown]
  - Night sweats [Unknown]
  - Weight decreased [Unknown]
  - Fistula [Unknown]
  - Lymphoma [Unknown]
  - Alanine aminotransferase abnormal [Unknown]
